FAERS Safety Report 9011005 (Version 2)
Quarter: 2013Q1

REPORT INFORMATION
  Report Type: Report from Study
  Country: US (occurrence: US)
  Receive Date: 20130109
  Receipt Date: 20130308
  Transmission Date: 20140127
  Serious: Yes (Hospitalization)
  Sender: FDA-Public Use
  Company Number: US-ABBOTT-12P-163-1029457-00

PATIENT
  Sex: Female
  Weight: 104.42 kg

DRUGS (8)
  1. HUMIRA [Suspect]
     Indication: RHEUMATOID ARTHRITIS
     Dates: start: 201205, end: 201211
  2. METHOTREXATE [Concomitant]
     Indication: RHEUMATOID ARTHRITIS
  3. LOTENSIN [Concomitant]
     Indication: HYPERTENSION
  4. AMLODIPINE [Concomitant]
     Indication: HYPERTENSION
  5. LOPRESSOR [Concomitant]
     Indication: HYPERTENSION
  6. PREDNISONE [Concomitant]
     Indication: RHEUMATOID ARTHRITIS
  7. MOBIC [Concomitant]
     Indication: RHEUMATOID ARTHRITIS
  8. FOLIC ACID [Concomitant]
     Indication: PRODUCT USED FOR UNKNOWN INDICATION

REACTIONS (6)
  - Pulmonary thrombosis [Unknown]
  - Thrombosis [Unknown]
  - Local swelling [Not Recovered/Not Resolved]
  - Dyspnoea [Recovered/Resolved]
  - Arthritis [Not Recovered/Not Resolved]
  - Arthralgia [Not Recovered/Not Resolved]
